FAERS Safety Report 5767827-5 (Version None)
Quarter: 2008Q2

REPORT INFORMATION
  Report Type: 
  Country: None (occurrence: None)
  Receive Date: 20080612
  Receipt Date: 20080606
  Transmission Date: 20081010
  Serious: Yes (Other)
  Sender: FDA-Public Use
  Company Number: JP-ASTRAZENECA-2008AP00510

PATIENT
  Age: 26570 Day
  Sex: Male

DRUGS (11)
  1. CASODEX [Suspect]
     Indication: PROSTATE CANCER
     Route: 048
     Dates: start: 20071115, end: 20071128
  2. TAMSULOSIN HCL [Concomitant]
     Indication: BENIGN PROSTATIC HYPERPLASIA
     Route: 048
     Dates: start: 20071004
  3. NIFELANTERN CR [Concomitant]
     Route: 048
  4. QUINAPRIL HCL [Concomitant]
     Route: 048
  5. PODONIN-S [Concomitant]
     Route: 048
  6. MUCOSTA [Concomitant]
     Route: 048
  7. YOULITASE-A [Concomitant]
     Dosage: UNKNOWN DOSE
     Route: 048
  8. MAIBASTAN [Concomitant]
     Route: 048
  9. PINATOS [Concomitant]
     Route: 048
  10. UNKNOWNDRUG [Concomitant]
     Route: 048
  11. AMARYL [Concomitant]
     Route: 048

REACTIONS (1)
  - HEPATIC FUNCTION ABNORMAL [None]
